FAERS Safety Report 8059908 (Version 6)
Quarter: 2013Q1

REPORT INFORMATION
  Report Type: Spontaneous
  Country: US (occurrence: US)
  Receive Date: 20110729
  Receipt Date: 20130221
  Transmission Date: 20140127
  Serious: No
  Sender: FDA-Public Use
  Company Number: US-BIOGENIDEC-2011BI027035

PATIENT
  Age: 52 None
  Sex: Male

DRUGS (1)
  1. TYSABRI [Suspect]
     Indication: MULTIPLE SCLEROSIS
     Route: 042
     Dates: start: 20110408, end: 20111229

REACTIONS (13)
  - Facial spasm [Not Recovered/Not Resolved]
  - Mobility decreased [Not Recovered/Not Resolved]
  - Facial pain [Not Recovered/Not Resolved]
  - Poor venous access [Recovered/Resolved]
  - Gait disturbance [Not Recovered/Not Resolved]
  - Aphasia [Recovered/Resolved]
  - Toothache [Recovered/Resolved]
  - Depression [Not Recovered/Not Resolved]
  - Fall [Not Recovered/Not Resolved]
  - Balance disorder [Not Recovered/Not Resolved]
  - Loss of control of legs [Not Recovered/Not Resolved]
  - Drug ineffective [Not Recovered/Not Resolved]
  - Headache [Not Recovered/Not Resolved]
